FAERS Safety Report 9768903 (Version 1)
Quarter: 2013Q4

REPORT INFORMATION
  Report Type: Spontaneous
  Country: CN (occurrence: None)
  Receive Date: 20131216
  Receipt Date: 20131216
  Transmission Date: 20140711
  Serious: Yes (Death, Hospitalization)
  Sender: FDA-Public Use
  Company Number: CO-OR-JP-2013-226

PATIENT
  Age: 39 Year
  Sex: Male

DRUGS (1)
  1. PREDNISOLONE [Suspect]
     Indication: PULMONARY GRANULOMA
     Route: 048

REACTIONS (3)
  - Haemoptysis [None]
  - Haemorrhage [None]
  - Asphyxia [None]
